FAERS Safety Report 4547082-4 (Version None)
Quarter: 2005Q1

REPORT INFORMATION
  Report Type: 
  Country: None (occurrence: None)
  Receive Date: 20050105
  Receipt Date: 20041221
  Transmission Date: 20050727
  Serious: Yes (Hospitalization)
  Sender: FDA-Public Use
  Company Number: INDT-PR-0412S-0001

PATIENT
  Age: 76 Year
  Sex: Male

DRUGS (1)
  1. INDIUM- 111 DTPA INJ [Suspect]
     Dosage: 70.3 MBQ, SINGLE DOSE, OTHER
     Dates: start: 20041122, end: 20041122

REACTIONS (2)
  - IMPLANT SITE INFECTION [None]
  - STAPHYLOCOCCAL INFECTION [None]
